FAERS Safety Report 5997516-3 (Version None)
Quarter: 2008Q4

REPORT INFORMATION
  Report Type: 
  Country: None (occurrence: None)
  Receive Date: 20081212
  Receipt Date: 20081114
  Transmission Date: 20090506
  Serious: No
  Sender: FDA-Public Use
  Company Number: US-ABBOTT-08P-163-0487942-00

PATIENT
  Sex: Female
  Weight: 69.462 kg

DRUGS (7)
  1. HUMIRA [Suspect]
     Indication: RHEUMATOID ARTHRITIS
     Dosage: 40MG Q2WKS - 3 INJECTIONS RECEIVED
     Route: 058
     Dates: start: 20080901
  2. MELOXICAM [Concomitant]
     Indication: RHEUMATOID ARTHRITIS
  3. DULOXETINE HYDROCHLORIDE [Concomitant]
     Indication: MIGRAINE
  4. BORAGE [Concomitant]
     Indication: RHEUMATOID ARTHRITIS
  5. UNKNOWN SINUS MEDICATION [Concomitant]
     Indication: SINUS DISORDER
  6. MISOPROSTOL [Concomitant]
     Indication: DRUG USE FOR UNKNOWN INDICATION
  7. LANSOPRAZOLE [Concomitant]
     Indication: GASTRIC DISORDER

REACTIONS (3)
  - DRUG INEFFECTIVE [None]
  - JOINT SWELLING [None]
  - RHEUMATOID ARTHRITIS [None]
